FAERS Safety Report 15420301 (Version 1)
Quarter: 2018Q3

REPORT INFORMATION
  Report Type: Spontaneous
  Country: IT (occurrence: IT)
  Receive Date: 20180924
  Receipt Date: 20180924
  Transmission Date: 20181010
  Serious: Yes (Hospitalization)
  Sender: FDA-Public Use
  Company Number: IT-PFIZER INC-2018380382

PATIENT
  Age: 9 Year
  Sex: Male
  Weight: 30 kg

DRUGS (3)
  1. METHOTREXATE. [Suspect]
     Active Substance: METHOTREXATE
     Indication: LEUKAEMIA RECURRENT
     Dosage: 20 MG, WEEKLY
     Route: 048
     Dates: start: 20180430, end: 20180504
  2. PURINETHOL [Suspect]
     Active Substance: MERCAPTOPURINE
     Indication: LEUKAEMIA RECURRENT
     Dosage: 75 MG, 1X/DAY
     Route: 048
     Dates: start: 20180430, end: 20180504
  3. FOLIC ACID. [Concomitant]
     Active Substance: FOLIC ACID
     Route: 048

REACTIONS (2)
  - Hypertransaminasaemia [Recovering/Resolving]
  - Bone marrow failure [Recovering/Resolving]

NARRATIVE: CASE EVENT DATE: 20180504
